FAERS Safety Report 10757929 (Version 2)
Quarter: 2015Q1

REPORT INFORMATION
  Report Type: Spontaneous
  Country: ES (occurrence: ES)
  Receive Date: 20150203
  Receipt Date: 20150304
  Transmission Date: 20150721
  Serious: Yes (Other)
  Sender: FDA-Public Use
  Company Number: ES-AMGEN-ESPSP2015008550

PATIENT
  Age: 71 Year
  Sex: Female
  Weight: 60 kg

DRUGS (8)
  1. NPLATE [Suspect]
     Active Substance: ROMIPLOSTIM
     Indication: IMMUNE THROMBOCYTOPENIC PURPURA
     Dosage: 300 MUG, UNK
     Route: 058
     Dates: start: 20130806
  2. OSVICAL D [Concomitant]
     Indication: WRIST FRACTURE
  3. PROLIA [Concomitant]
     Active Substance: DENOSUMAB
     Indication: OSTEOARTHRITIS
  4. PROLIA [Concomitant]
     Active Substance: DENOSUMAB
     Indication: OSTEOPOROSIS POSTMENOPAUSAL
     Dosage: 60 MG, UNK
     Route: 058
     Dates: start: 20141210
  5. OSVICAL D [Concomitant]
     Indication: OSTEOARTHRITIS
     Dosage: UNK
     Route: 048
     Dates: start: 20141210
  6. LOSARTAN [Concomitant]
     Active Substance: LOSARTAN
     Indication: HYPERTENSION
     Dosage: UNK
     Route: 048
     Dates: start: 2013
  7. PROLIA [Concomitant]
     Active Substance: DENOSUMAB
     Indication: WRIST FRACTURE
  8. FLUVASTATINA [Concomitant]
     Indication: BLOOD CHOLESTEROL
     Dosage: UNK
     Route: 048
     Dates: start: 2013

REACTIONS (5)
  - Platelet count decreased [Recovering/Resolving]
  - Immune thrombocytopenic purpura [Recovering/Resolving]
  - Pain [Recovering/Resolving]
  - Wrist fracture [Unknown]
  - Osteoporosis postmenopausal [Recovering/Resolving]

NARRATIVE: CASE EVENT DATE: 20141215
